FAERS Safety Report 9170114 (Version 2)
Quarter: 2013Q1

REPORT INFORMATION
  Report Type: Spontaneous
  Country: FR (occurrence: None)
  Receive Date: 20130311
  Receipt Date: 20130311
  Transmission Date: 20140127
  Serious: Yes (Hospitalization)
  Sender: FDA-Public Use
  Company Number: ENTC2013-0087

PATIENT
  Age: 87 Year
  Sex: Male

DRUGS (7)
  1. STALEVO [Suspect]
     Route: 048
     Dates: start: 20121112
  2. MODOPAR [Concomitant]
  3. LOXEN [Concomitant]
  4. IKOREL [Concomitant]
  5. DIFFU K [Concomitant]
  6. KARDEGIC [Concomitant]
  7. DAFALGAN [Concomitant]

REACTIONS (2)
  - Parkinson^s disease [None]
  - Somnolence [None]
